FAERS Safety Report 6589126-4 (Version None)
Quarter: 2010Q1

REPORT INFORMATION
  Report Type: 
  Country: None (occurrence: None)
  Receive Date: 20100218
  Receipt Date: 20100208
  Transmission Date: 20100710
  Serious: Yes (Hospitalization, Other)
  Sender: FDA-Public Use
  Company Number: JP-B.I. PHARMACEUTICALS,INC./RIDGEFIELD-2010-DE-00483GD

PATIENT
  Sex: Male

DRUGS (2)
  1. ORCIPRENALIN [Suspect]
     Indication: ASTHMA
     Route: 055
  2. THEOPHYLLINE [Suspect]
     Indication: ASTHMA
     Dosage: 300 MG
     Route: 048

REACTIONS (8)
  - BUNDLE BRANCH BLOCK RIGHT [None]
  - CARDIAC FAILURE [None]
  - DYSPNOEA [None]
  - HYPOTENSION [None]
  - PALPITATIONS [None]
  - PULMONARY OEDEMA [None]
  - SOMNOLENCE [None]
  - VENTRICULAR TACHYCARDIA [None]
